FAERS Safety Report 13159440 (Version 1)
Quarter: 2017Q1

REPORT INFORMATION
  Report Type: Report from Study
  Country: None (occurrence: US)
  Receive Date: 20170127
  Receipt Date: 20170127
  Transmission Date: 20170428
  Serious: Yes (Other)
  Sender: FDA-Public Use
  Company Number: US-ABBVIE-17P-163-1847870-00

PATIENT
  Age: 89 Year
  Sex: Female
  Weight: 65.83 kg

DRUGS (2)
  1. SYNTHROID [Suspect]
     Active Substance: LEVOTHYROXINE SODIUM
     Indication: HYPOTHYROIDISM
     Route: 048
     Dates: start: 1998
  2. SYNTHROID [Suspect]
     Active Substance: LEVOTHYROXINE SODIUM
     Indication: HYPOTHYROIDISM
     Route: 048

REACTIONS (3)
  - Benign salivary gland neoplasm [Recovered/Resolved]
  - Blood cholesterol increased [Recovered/Resolved]
  - Neck mass [Recovered/Resolved]

NARRATIVE: CASE EVENT DATE: 201611
